FAERS Safety Report 4286288-9 (Version None)
Quarter: 2004Q1

REPORT INFORMATION
  Report Type: 
  Country: None (occurrence: None)
  Receive Date: 20040129
  Receipt Date: 20030919
  Transmission Date: 20041129
  Serious: Yes (Hospitalization)
  Sender: FDA-Public Use
  Company Number: A001-002-005797

PATIENT
  Age: 81 Year
  Sex: Male
  Weight: 75 kg

DRUGS (2)
  1. ARICEPT [Suspect]
     Indication: DEMENTIA ALZHEIMER'S TYPE
     Dosage: ORAL
     Route: 048
     Dates: start: 20030101
  2. INDOCIN [Suspect]
     Dates: start: 20030101, end: 20030101

REACTIONS (2)
  - BLOOD CREATININE INCREASED [None]
  - RENAL FAILURE [None]
